FAERS Safety Report 20314700 (Version 1)
Quarter: 2022Q1

REPORT INFORMATION
  Report Type: Spontaneous
  Country: US (occurrence: None)
  Receive Date: 20220108
  Receipt Date: 20220108
  Transmission Date: 20220423
  Serious: Yes (Other)
  Sender: FDA-Public Use
  Company Number: None

PATIENT
  Age: 72 Year
  Sex: Male

DRUGS (4)
  1. CYCLOPHOSPHAMIDE [Suspect]
     Active Substance: CYCLOPHOSPHAMIDE
     Indication: Product used for unknown indication
     Dosage: TAKE 10 CAPSULES  ONCE A WEEK BY MOUTH? ?
     Route: 048
     Dates: start: 20211019
  2. ACYCLOVIR 200MG CAPSULES [Concomitant]
  3. BUMETANIDE 1 MG TABLETS [Concomitant]
  4. LEVOTHYROXINE 0.075MG (75MCG) CAPS [Concomitant]

REACTIONS (4)
  - Feeling abnormal [None]
  - Urine output decreased [None]
  - Constipation [None]
  - Adverse drug reaction [None]
